FAERS Safety Report 13452264 (Version 1)
Quarter: 2017Q2

REPORT INFORMATION
  Report Type: Report from Study
  Country: US (occurrence: US)
  Receive Date: 20170418
  Receipt Date: 20170418
  Transmission Date: 20170830
  Serious: Yes (Death, Other)
  Sender: FDA-Public Use
  Company Number: US-TEVA-760254USA

PATIENT
  Age: 64 Year
  Sex: Female
  Weight: 91.12 kg

DRUGS (4)
  1. PF-04383119;CELECOXIB [Suspect]
     Active Substance: CELECOXIB\TANEZUMAB
     Route: 065
  2. HYDROCHLOROTHIAZIDE. [Suspect]
     Active Substance: HYDROCHLOROTHIAZIDE
     Indication: BLOOD PRESSURE ABNORMAL
     Dosage: 12.5 MILLIGRAM DAILY;
     Route: 048
     Dates: start: 2013
  3. NAPROXEN SODIUM. [Suspect]
     Active Substance: NAPROXEN SODIUM
     Indication: OSTEOARTHRITIS
     Dosage: 500 MILLIGRAM DAILY; 1 TABLET IN AM, 1 TABLET IN PM
     Route: 048
     Dates: start: 20170313
  4. ACETAMINOPHEN. [Suspect]
     Active Substance: ACETAMINOPHEN
     Indication: OSTEOARTHRITIS
     Dosage: 3000 MILLIGRAM DAILY; PRN RESCUE MEDICATION
     Route: 048
     Dates: start: 20170313

REACTIONS (1)
  - Death [Fatal]
